FAERS Safety Report 8163460-9 (Version None)
Quarter: 2012Q1

REPORT INFORMATION
  Report Type: 
  Country: None (occurrence: None)
  Receive Date: 20120224
  Receipt Date: 20120215
  Transmission Date: 20120608
  Serious: Yes (Death)
  Sender: FDA-Public Use
  Company Number: GB-JNJFOC-20111108201

PATIENT
  Sex: Male
  Weight: 80 kg

DRUGS (6)
  1. OXYCODONE HCL [Concomitant]
     Indication: PAIN
     Route: 065
  2. ANALGESICS [Concomitant]
     Indication: ANALGESIC THERAPY
     Route: 065
  3. ANALGESICS [Concomitant]
     Indication: PALLIATIVE CARE
     Route: 065
  4. ZOLADEX [Concomitant]
     Indication: PRODUCT USED FOR UNKNOWN INDICATION
     Route: 065
  5. ZYTIGA [Suspect]
     Indication: PROSTATE CANCER METASTATIC
     Route: 048
     Dates: start: 20111111, end: 20111118
  6. ANTIEMETICS [Concomitant]
     Indication: ANTIEMETIC SUPPORTIVE CARE
     Route: 065

REACTIONS (1)
  - PROSTATE CANCER METASTATIC [None]
